FAERS Safety Report 16500874 (Version 1)
Quarter: 2019Q3

REPORT INFORMATION
  Report Type: Spontaneous
  Country: US (occurrence: US)
  Receive Date: 20190628
  Receipt Date: 20190628
  Transmission Date: 20191004
  Serious: Yes (Life-Threatening, Hospitalization)
  Sender: FDA-Public Use
  Company Number: None

PATIENT
  Age: 29 Year
  Sex: Female

DRUGS (1)
  1. FERRLECIT [Suspect]
     Active Substance: SODIUM FERRIC GLUCONATE COMPLEX
     Indication: ANAEMIA
     Dosage: ?          OTHER FREQUENCY:ONCE;?
     Route: 041

REACTIONS (8)
  - Dyspnoea [None]
  - Angioedema [None]
  - Swollen tongue [None]
  - Lip swelling [None]
  - Nausea [None]
  - Swelling of eyelid [None]
  - Pharyngeal oedema [None]
  - Depressed level of consciousness [None]

NARRATIVE: CASE EVENT DATE: 20190621
